FAERS Safety Report 16081886 (Version 1)
Quarter: 2019Q1

REPORT INFORMATION
  Report Type: Spontaneous
  Country: US (occurrence: US)
  Receive Date: 20190317
  Receipt Date: 20190317
  Transmission Date: 20190418
  Serious: No
  Sender: FDA-Public Use
  Company Number: US-JNJFOC-20190302649

PATIENT
  Sex: Male

DRUGS (5)
  1. LYRICA [Suspect]
     Active Substance: PREGABALIN
     Indication: INSOMNIA
     Dosage: FREQUENCY: ONCE; STARTED ABOUT A YEAR
     Route: 048
  2. TRAMADOL HYDROCHLORIDE. [Suspect]
     Active Substance: TRAMADOL HYDROCHLORIDE
     Indication: ABDOMINAL PAIN
     Dosage: FREQUENCY WAS THOUGHT TO BE 4
     Route: 048
  3. HYDROCODONE [Suspect]
     Active Substance: HYDROCODONE
     Indication: ABDOMINAL PAIN
     Dosage: DOSE WAS THOUGHT TO BE 325 MG AND FREQUENCY: ONE
     Route: 048
  4. LYRICA [Suspect]
     Active Substance: PREGABALIN
     Indication: ABDOMINAL PAIN
     Dosage: FREQUENCY: ONCE; STARTED ABOUT A YEAR
     Route: 048
  5. LORAZEPAM. [Concomitant]
     Active Substance: LORAZEPAM
     Indication: ANXIETY
     Dosage: DOSE: MIGHT BE 5 (UNITS UNSPECIFIED), ONCE
     Route: 048

REACTIONS (4)
  - Abdominal pain [Not Recovered/Not Resolved]
  - Product lot number issue [Unknown]
  - Multiple allergies [Not Recovered/Not Resolved]
  - Product expiration date issue [Unknown]
